FAERS Safety Report 8958478 (Version 1)
Quarter: 2012Q4

REPORT INFORMATION
  Report Type: 
  Country: US (occurrence: None)
  Receive Date: 20121205
  Receipt Date: 20121205
  Transmission Date: 20130627
  Serious: No
  Sender: FDA-Public Use
  Company Number: None

PATIENT
  Sex: Male
  Weight: 91.7 kg

DRUGS (1)
  1. PEG-L-ASPARAGINASE [Suspect]

REACTIONS (7)
  - Vomiting [None]
  - Chest discomfort [None]
  - Nausea [None]
  - Unresponsive to stimuli [None]
  - Urinary incontinence [None]
  - Chest pain [None]
  - Anaphylactic reaction [None]
